FAERS Safety Report 13496061 (Version 1)
Quarter: 2017Q2

REPORT INFORMATION
  Report Type: Spontaneous
  Country: IN (occurrence: IN)
  Receive Date: 20170428
  Receipt Date: 20170428
  Transmission Date: 20170830
  Serious: Yes (Other)
  Sender: FDA-Public Use
  Company Number: IN-HERITAGE PHARMACEUTICALS-2017HTG00088

PATIENT
  Age: 61 Year
  Sex: Male

DRUGS (1)
  1. ACYCLOVIR. [Suspect]
     Active Substance: ACYCLOVIR
     Indication: VARICELLA ZOSTER VIRUS INFECTION
     Dosage: 10 MG/KG, EVERY 8 HOURS (TOTAL DOSE: 4.5 G)
     Route: 042

REACTIONS (6)
  - Anaemia [Unknown]
  - Thrombocytopenia [Unknown]
  - Tubulointerstitial nephritis [Recovering/Resolving]
  - Dyspnoea [Unknown]
  - Oedema peripheral [Unknown]
  - Thrombotic microangiopathy [Recovering/Resolving]
